FAERS Safety Report 12406898 (Version 1)
Quarter: 2016Q2

REPORT INFORMATION
  Report Type: Spontaneous
  Country: GB (occurrence: GB)
  Receive Date: 20160526
  Receipt Date: 20160526
  Transmission Date: 20160815
  Serious: Yes (Other)
  Sender: FDA-Public Use
  Company Number: GB-PFIZER INC-2016267827

PATIENT
  Age: 73 Year
  Sex: Female
  Weight: 62 kg

DRUGS (11)
  1. LYRICA [Suspect]
     Active Substance: PREGABALIN
     Indication: EPILEPSY
     Dosage: 1 DF, 2X/DAY
     Dates: start: 20160511
  2. AMOXICILLIN. [Concomitant]
     Active Substance: AMOXICILLIN
     Dosage: 1 DF, 3X/DAY
     Dates: start: 20160401, end: 20160408
  3. ISPAGHULA EXTRACT\PSYLLIUM [Concomitant]
     Active Substance: PLANTAGO OVATA SEED\PLANTAGO SEED
     Dosage: 1 DF, 2X/DAY SACHET
     Dates: start: 20140730
  4. EPADERM [Concomitant]
     Active Substance: MINERAL OIL\PETROLATUM\WAX, EMULSIFYING
     Dosage: USE AS DIRECTED
     Dates: start: 20150828
  5. ESTRADIOL. [Concomitant]
     Active Substance: ESTRADIOL
     Dosage: 1 DF, 1X/DAY EACH EVENING
     Route: 067
     Dates: start: 20151116
  6. GELTEARS [Concomitant]
     Dosage: 1 GTT, UNK
     Dates: start: 20150514
  7. DERMOL [Concomitant]
     Active Substance: BENZALKONIUM CHLORIDE\CHLORHEXIDINE HYDROCHLORIDE\ISOPROPYL MYRISTATE\PARAFFIN
     Indication: DRY SKIN
     Dosage: USE FREQUENTLY
     Dates: start: 20150828
  8. METRONIDAZOLE. [Concomitant]
     Active Substance: METRONIDAZOLE
     Dosage: 1 DF, 3X/DAY
     Dates: start: 20160401, end: 20160408
  9. LYRICA [Suspect]
     Active Substance: PREGABALIN
     Indication: ANXIETY
  10. HYDROCORTISONE. [Concomitant]
     Active Substance: HYDROCORTISONE
     Dosage: 1 DF, 3X/DAY
     Dates: start: 20160420, end: 20160421
  11. IBUPROFEN. [Concomitant]
     Active Substance: IBUPROFEN
     Dosage: 1 DF, 3X/DAY
     Dates: start: 20111123

REACTIONS (6)
  - Swollen tongue [Recovering/Resolving]
  - Tongue discolouration [Recovering/Resolving]
  - Cheilitis [Recovering/Resolving]
  - Lip swelling [Recovering/Resolving]
  - Lip pain [Recovering/Resolving]
  - Glossodynia [Recovering/Resolving]

NARRATIVE: CASE EVENT DATE: 20160511
